FAERS Safety Report 23934136 (Version 1)
Quarter: 2024Q2

REPORT INFORMATION
  Report Type: Spontaneous
  Country: GB (occurrence: None)
  Receive Date: 20240603
  Receipt Date: 20240603
  Transmission Date: 20240716
  Serious: Yes (Other)
  Sender: FDA-Public Use
  Company Number: 2024A128817

PATIENT
  Age: 70 Year
  Sex: Female
  Weight: 74 kg

DRUGS (18)
  1. DAPAGLIFLOZIN [Suspect]
     Active Substance: DAPAGLIFLOZIN
     Dates: start: 20240229
  2. ALOGLIPTIN [Concomitant]
     Active Substance: ALOGLIPTIN
     Dates: start: 20230704
  3. AMITRIPTYLINE HYDROCHLORIDE [Concomitant]
     Active Substance: AMITRIPTYLINE HYDROCHLORIDE
     Dosage: AT NIGHT
     Dates: start: 20230704
  4. ATORVASTATIN [Concomitant]
     Active Substance: ATORVASTATIN
     Dosage: AT NIGHT
     Dates: start: 20230704
  5. CLOTRIMAZOLE [Concomitant]
     Active Substance: CLOTRIMAZOLE
     Dosage: APPLY 2-3 TIMES A DAY ON AFFECTED AREA
     Dates: start: 20240501
  6. CODEINE PHOSPHATE [Concomitant]
     Active Substance: CODEINE PHOSPHATE
     Dosage: TWO TO BE TAKEN FOUR TIMES A DAY AS REQUIRED
     Dates: start: 20230704
  7. DERMOL [Concomitant]
     Active Substance: BENZALKONIUM CHLORIDE\CHLORHEXIDINE HYDROCHLORIDE\ISOPROPYL MYRISTATE\PARAFFIN
     Dosage: USE AS MOISTURISER OR AS A SOAP SUBSTITUTE
     Dates: start: 20231005
  8. DICLOFENAC DIETHYLAMINE [Concomitant]
     Active Substance: DICLOFENAC DIETHYLAMINE
     Dosage: APPLY UP TOTHREE TIMES A DAY TO THE AFFECTED AR...
     Dates: start: 20231005
  9. ISOPROPYL MYRISTATE\MINERAL OIL [Concomitant]
     Active Substance: ISOPROPYL MYRISTATE\MINERAL OIL
     Dosage: USE AS NEEDED
     Dates: start: 20231005, end: 20240424
  10. HYPROMELLOSES [Concomitant]
     Active Substance: HYPROMELLOSES
     Dosage: TO BE USED AS DIRECTED WHEN REQUIRED
     Dates: start: 20230704
  11. LANSOPRAZOLE [Concomitant]
     Active Substance: LANSOPRAZOLE
     Dates: start: 20230704
  12. MEBEVERINE HYDROCHLORIDE [Concomitant]
     Active Substance: MEBEVERINE HYDROCHLORIDE
     Dosage: TAKE ONE TABLET 20MIN BEFORE MEALS, UP TO 3 TIM...
     Dates: start: 20230704
  13. MELOXICAM [Concomitant]
     Active Substance: MELOXICAM
     Dates: start: 20230704
  14. METFORMIN [Concomitant]
     Active Substance: METFORMIN HYDROCHLORIDE
     Indication: Diabetes mellitus
     Dates: start: 20230704
  15. PROPRANOLOL [Concomitant]
     Active Substance: PROPRANOLOL HYDROCHLORIDE
     Dosage: TAKE ONE OR TWO FOUR TIMES A DAY AS REQUIRED
     Dates: start: 20230704
  16. RAMIPRIL [Concomitant]
     Active Substance: RAMIPRIL
     Indication: Hypertension
     Dates: start: 20230704
  17. ALBUTEROL [Concomitant]
     Active Substance: ALBUTEROL
     Dosage: 2 PUFFS AS REQUIRED
     Dates: start: 20230704
  18. LANOLIN\ZINC OXIDE [Concomitant]
     Active Substance: LANOLIN\ZINC OXIDE
     Dosage: APPLY ONCE A DAY TO AFFECTED AREA
     Dates: start: 20240523

REACTIONS (2)
  - Candida infection [Unknown]
  - Skin ulcer [Unknown]

NARRATIVE: CASE EVENT DATE: 20240229
